FAERS Safety Report 23607840 (Version 2)
Quarter: 2024Q2

REPORT INFORMATION
  Report Type: Report from Study
  Country: BR (occurrence: BR)
  Receive Date: 20240307
  Receipt Date: 20240410
  Transmission Date: 20240716
  Serious: Yes (Other)
  Sender: FDA-Public Use
  Company Number: BR-JNJFOC-20240183131

PATIENT
  Age: 47 Year
  Sex: Female
  Weight: 72 kg

DRUGS (2)
  1. SIMPONI [Suspect]
     Active Substance: GOLIMUMAB
     Indication: Psoriatic arthropathy
     Route: 058
  2. SIMPONI [Suspect]
     Active Substance: GOLIMUMAB

REACTIONS (2)
  - Psoriatic arthropathy [Not Recovered/Not Resolved]
  - Herpes virus infection [Unknown]

NARRATIVE: CASE EVENT DATE: 20240101
